FAERS Safety Report 20155516 (Version 2)
Quarter: 2022Q1

REPORT INFORMATION
  Report Type: Report from Study
  Country: GB (occurrence: GB)
  Receive Date: 20211207
  Receipt Date: 20220119
  Transmission Date: 20220423
  Serious: Yes (Other)
  Sender: FDA-Public Use
  Company Number: GB-FEDR-MF-002-5052001-20211029-0001SG

PATIENT
  Age: 64 Year
  Sex: Female
  Weight: 60 kg

DRUGS (13)
  1. FEDRATINIB [Suspect]
     Active Substance: FEDRATINIB
     Indication: Primary myelofibrosis
     Dosage: 400 MG X 1 X 1 DAYS
     Route: 048
     Dates: start: 20201210, end: 20211111
  2. ACYCLOVIR [Concomitant]
     Active Substance: ACYCLOVIR
     Indication: Antiviral prophylaxis
     Dosage: 400 MG X 2 X 1 DAYS
     Route: 048
     Dates: start: 2018
  3. CLOPIDOGREL [Concomitant]
     Active Substance: CLOPIDOGREL BISULFATE
     Indication: Myelofibrosis
     Dosage: 75 MG X 1 X 1 DAYS
     Route: 048
     Dates: start: 2013
  4. FOLIC ACID [Concomitant]
     Active Substance: FOLIC ACID
     Indication: Vitamin D deficiency
     Dosage: 5 MG X 1 X 1 DAYS
     Route: 048
     Dates: start: 2013
  5. RUXOLITINIB [Concomitant]
     Active Substance: RUXOLITINIB
     Indication: Myelofibrosis
     Dosage: 10 MG X 2 X 1 DAYS
     Route: 048
     Dates: start: 201401
  6. THYROXINE [Concomitant]
     Active Substance: LEVOTHYROXINE
     Indication: Hypothyroidism
     Dosage: 0.1 MG X 1 X 1 DAYS
     Route: 048
     Dates: start: 2015
  7. CALCIUM CARBONATE [Concomitant]
     Active Substance: CALCIUM CARBONATE
     Indication: Prophylaxis
     Dosage: 2 TABLET X 1 X 1 DAYS
     Route: 048
     Dates: start: 20210204
  8. CHOLECALCIFEROL [Concomitant]
     Active Substance: CHOLECALCIFEROL
     Indication: Vitamin supplementation
     Dosage: 20000 IU X 1 X 1 WEEKS
     Route: 048
     Dates: start: 20210624
  9. ERYTHROPOIETIN [Concomitant]
     Active Substance: ERYTHROPOIETIN
     Indication: Product used for unknown indication
     Dosage: 300 UNITS X 1 X 1 WEEKS
     Route: 058
     Dates: start: 20210121
  10. LOPERAMIDE [Concomitant]
     Active Substance: LOPERAMIDE
     Indication: Prophylaxis against diarrhoea
     Dosage: 2 MG X PRN
     Route: 048
     Dates: start: 20201210
  11. LORATADINE [Concomitant]
     Active Substance: LORATADINE
     Indication: Prophylaxis
     Dosage: 100 MG X 1 X 1 DAYS
     Route: 048
     Dates: start: 20210527
  12. ONDANSETRON [Concomitant]
     Active Substance: ONDANSETRON
     Indication: Prophylaxis of nausea and vomiting
     Dosage: 8 MG X PRN
     Route: 048
     Dates: start: 20201210
  13. THIAMINE HYDROCHLORIDE [Concomitant]
     Active Substance: THIAMINE HYDROCHLORIDE
     Indication: Prophylaxis
     Dosage: 100 MG X 1 X 1 DAYS
     Route: 048
     Dates: start: 20210624

REACTIONS (1)
  - Iridocyclitis [Recovered/Resolved]

NARRATIVE: CASE EVENT DATE: 20211011
